FAERS Safety Report 18290761 (Version 2)
Quarter: 2020Q3

REPORT INFORMATION
  Report Type: Spontaneous
  Country: US (occurrence: US)
  Receive Date: 20200922
  Receipt Date: 20200929
  Transmission Date: 20201103
  Serious: No
  Sender: FDA-Public Use
  Company Number: US-HETERO-HET2020US01024

PATIENT
  Age: 62 Year
  Sex: Male
  Weight: 111 kg

DRUGS (4)
  1. PANTOPRAZOLE [Suspect]
     Active Substance: PANTOPRAZOLE
     Indication: DYSPEPSIA
  2. LISINOPRIL. [Concomitant]
     Active Substance: LISINOPRIL
     Indication: BLOOD PRESSURE ABNORMAL
     Dosage: 20 MG, QD
     Route: 065
  3. TRAMADOL. [Concomitant]
     Active Substance: TRAMADOL
     Indication: PAIN
     Dosage: 50 MG
     Route: 065
  4. PANTOPRAZOLE [Suspect]
     Active Substance: PANTOPRAZOLE
     Indication: GASTRIC PH DECREASED
     Dosage: EVERY DAY AND TRY TO SKIP EVERY OTHER DAY IN ORDER TO TAKE LOW DOSE
     Route: 048

REACTIONS (9)
  - Pain [Recovered/Resolved]
  - Muscle spasms [Recovered/Resolved]
  - Bacterial test positive [Recovered/Resolved]
  - Vitamin B12 decreased [Recovered/Resolved]
  - Inappropriate schedule of product administration [Recovered/Resolved]
  - Body temperature decreased [Recovered/Resolved]
  - Flank pain [Recovered/Resolved]
  - Urine ketone body present [Recovered/Resolved]
  - Blood urine present [Recovered/Resolved]
